FAERS Safety Report 13948894 (Version 2)
Quarter: 2017Q4

REPORT INFORMATION
  Report Type: Spontaneous
  Country: US (occurrence: US)
  Receive Date: 20170908
  Receipt Date: 20171010
  Transmission Date: 20180320
  Serious: No
  Sender: FDA-Public Use
  Company Number: US-ASTRAZENECA-2017SE88765

PATIENT
  Age: 698 Month
  Sex: Female
  Weight: 86.2 kg

DRUGS (6)
  1. LOSARTAN. [Concomitant]
     Active Substance: LOSARTAN
  2. SYMBICORT [Suspect]
     Active Substance: BUDESONIDE\FORMOTEROL FUMARATE DIHYDRATE
     Indication: CHRONIC OBSTRUCTIVE PULMONARY DISEASE
     Dosage: 160/4.5UG TWO INHALATIONS TWO TIMES A DAY
     Route: 055
     Dates: start: 20170526, end: 201709
  3. GLIMEPIRIDE. [Concomitant]
     Active Substance: GLIMEPIRIDE
     Indication: GLUCOSE TOLERANCE IMPAIRED
  4. SIMVASTATIN. [Concomitant]
     Active Substance: SIMVASTATIN
  5. SYMBICORT [Suspect]
     Active Substance: BUDESONIDE\FORMOTEROL FUMARATE DIHYDRATE
     Indication: EMPHYSEMA
     Dosage: 160/4.5UG TWO INHALATIONS TWO TIMES A DAY
     Route: 055
     Dates: start: 20170526, end: 201709
  6. METFORMIN [Concomitant]
     Active Substance: METFORMIN HYDROCHLORIDE
     Indication: GLUCOSE TOLERANCE IMPAIRED
     Dosage: AT NIGHT

REACTIONS (2)
  - Alopecia [Not Recovered/Not Resolved]
  - Panic reaction [Unknown]
